FAERS Safety Report 10231774 (Version 2)
Quarter: 2014Q2

REPORT INFORMATION
  Report Type: Report from Study
  Country: FR (occurrence: FR)
  Receive Date: 20140612
  Receipt Date: 20140626
  Transmission Date: 20141212
  Serious: Yes (Hospitalization)
  Sender: FDA-Public Use
  Company Number: FR-ROCHE-1416151

PATIENT
  Age: 7 Year
  Sex: Male
  Weight: 23 kg

DRUGS (1)
  1. SOMATROPIN [Suspect]
     Indication: GROWTH HORMONE DEFICIENCY
     Dosage: 10 MG/2 ML.
     Route: 058
     Dates: start: 20080107

REACTIONS (4)
  - Adenoidectomy [Recovered/Resolved]
  - Adenoidal hypertrophy [Recovered/Resolved]
  - Tonsillectomy [Recovered/Resolved]
  - Tonsillar hypertrophy [Recovered/Resolved]
